FAERS Safety Report 17999454 (Version 1)
Quarter: 2020Q3

REPORT INFORMATION
  Report Type: Spontaneous
  Country: IN (occurrence: IN)
  Receive Date: 20200709
  Receipt Date: 20200709
  Transmission Date: 20201103
  Serious: Yes (Hospitalization)
  Sender: FDA-Public Use
  Company Number: None

PATIENT
  Age: 19 Year
  Sex: Female
  Weight: 54 kg

DRUGS (3)
  1. WYSOLONE [Concomitant]
     Active Substance: PREDNISOLONE
     Dates: start: 20200630
  2. PANTOP [Concomitant]
     Active Substance: PANTOPRAZOLE SODIUM
     Dates: start: 20200630
  3. GABAPIN [Suspect]
     Active Substance: GABAPENTIN
     Indication: CHRONIC INFLAMMATORY DEMYELINATING POLYRADICULONEUROPATHY
     Route: 048
     Dates: start: 20200704, end: 20200705

REACTIONS (1)
  - Ileus [None]

NARRATIVE: CASE EVENT DATE: 20200705
